FAERS Safety Report 9210196 (Version 3)
Quarter: 2013Q2

REPORT INFORMATION
  Report Type: Spontaneous
  Country: US (occurrence: US)
  Receive Date: 20130404
  Receipt Date: 20130502
  Transmission Date: 20140414
  Serious: Yes (Hospitalization)
  Sender: FDA-Public Use
  Company Number: US-BAXTER-2013BAX011108

PATIENT
  Age: 64 Year
  Sex: Male

DRUGS (4)
  1. DIANEAL PD2 [Suspect]
     Indication: PERITONEAL DIALYSIS
     Route: 033
     Dates: start: 20130304, end: 20130318
  2. DIANEAL PD2 [Suspect]
     Route: 033
  3. EXTRANEAL [Suspect]
     Indication: PERITONEAL DIALYSIS
     Route: 033
     Dates: end: 20130318
  4. EXTRANEAL [Suspect]
     Route: 033

REACTIONS (1)
  - Hernia [Recovering/Resolving]
